FAERS Safety Report 5120156-5 (Version None)
Quarter: 2006Q3

REPORT INFORMATION
  Report Type: 
  Country: None (occurrence: None)
  Receive Date: 20060928
  Receipt Date: 20060913
  Transmission Date: 20061208
  Serious: Yes (Hospitalization, Disabling)
  Sender: FDA-Public Use
  Company Number: 2006-01-1629

PATIENT
  Age: 64 Year
  Sex: Female
  Weight: 45 kg

DRUGS (7)
  1. PEG-INTRON [Suspect]
     Indication: HEPATITIS C
     Dosage: 80 MCG; QW; SC; 60 MCG; QW; SC
     Route: 058
     Dates: start: 20050712, end: 20050824
  2. PEG-INTRON [Suspect]
     Indication: HEPATITIS C
     Dosage: 80 MCG; QW; SC; 60 MCG; QW; SC
     Route: 058
     Dates: start: 20050831, end: 20051207
  3. REBETOL [Suspect]
     Indication: HEPATITIS C
     Dosage: 600  MG; QD; PO;  400 MG; QD; PO;  200 MG; QD; PO
     Route: 048
     Dates: start: 20050712, end: 20050830
  4. REBETOL [Suspect]
     Indication: HEPATITIS C
     Dosage: 600  MG; QD; PO;  400 MG; QD; PO;  200 MG; QD; PO
     Route: 048
     Dates: start: 20050831, end: 20051101
  5. REBETOL [Suspect]
     Indication: HEPATITIS C
     Dosage: 600  MG; QD; PO;  400 MG; QD; PO;  200 MG; QD; PO
     Route: 048
     Dates: start: 20051101, end: 20051212
  6. VINCRISTINE [Suspect]
     Indication: LYMPHOMA
  7. THYRADIN S (CON.) [Concomitant]

REACTIONS (11)
  - ACTIVITIES OF DAILY LIVING IMPAIRED [None]
  - ANAEMIA [None]
  - BLOOD PRESSURE DECREASED [None]
  - BRAIN NATRIURETIC PEPTIDE INCREASED [None]
  - CARDIAC DISORDER [None]
  - CARDIAC FAILURE CONGESTIVE [None]
  - DECREASED APPETITE [None]
  - ELECTROCARDIOGRAM T WAVE AMPLITUDE DECREASED [None]
  - ELECTROCARDIOGRAM T WAVE INVERSION [None]
  - MALAISE [None]
  - PLEURAL EFFUSION [None]
